FAERS Safety Report 7961227-5 (Version None)
Quarter: 2011Q4

REPORT INFORMATION
  Report Type: 
  Country: None (occurrence: None)
  Receive Date: 20111207
  Receipt Date: 20111128
  Transmission Date: 20120403
  Serious: Yes (Hospitalization, Other)
  Sender: FDA-Public Use
  Company Number: AU-ELI_LILLY_AND_COMPANY-AU201111007905

PATIENT
  Sex: Female

DRUGS (1)
  1. FORTEO [Suspect]
     Indication: OSTEOPOROSIS
     Dosage: UNK, QD
     Dates: start: 20100528, end: 20111031

REACTIONS (7)
  - HEAD INJURY [None]
  - BALANCE DISORDER [None]
  - VERTIGO [None]
  - LOSS OF CONSCIOUSNESS [None]
  - FALL [None]
  - HAEMATOMA [None]
  - CARDIAC DISORDER [None]
